FAERS Safety Report 5348143-2 (Version None)
Quarter: 2007Q2

REPORT INFORMATION
  Report Type: 
  Country: None (occurrence: None)
  Receive Date: 20070606
  Receipt Date: 20070531
  Transmission Date: 20071010
  Serious: Yes (Hospitalization, Other)
  Sender: FDA-Public Use
  Company Number: US-BOEHRINGER INGELHEIM PHARMACEUTICALS, INC.-2007-BP-07622PF

PATIENT
  Sex: Female
  Weight: 64 kg

DRUGS (4)
  1. SPIRIVA [Suspect]
     Indication: EMPHYSEMA
     Route: 055
     Dates: start: 20040101
  2. SPIRIVA [Suspect]
     Indication: CHRONIC OBSTRUCTIVE PULMONARY DISEASE
  3. CHANTIX [Suspect]
     Indication: SMOKING CESSATION THERAPY
     Route: 048
     Dates: start: 20070501, end: 20070501
  4. ADVAIR DISKUS 100/50 [Suspect]
     Indication: EMPHYSEMA

REACTIONS (5)
  - DRUG INTERACTION [None]
  - DYSPNOEA [None]
  - EMPHYSEMA [None]
  - RESPIRATORY DISORDER [None]
  - RESPIRATORY DISTRESS [None]
